FAERS Safety Report 18093283 (Version 1)
Quarter: 2020Q3

REPORT INFORMATION
  Report Type: Spontaneous
  Country: FR (occurrence: FR)
  Receive Date: 20200730
  Receipt Date: 20200730
  Transmission Date: 20201103
  Serious: Yes (Hospitalization)
  Sender: FDA-Public Use
  Company Number: FR-JNJFOC-20200725442

PATIENT
  Age: 44 Year
  Sex: Female

DRUGS (6)
  1. RISPERDAL [Suspect]
     Active Substance: RISPERIDONE
     Indication: SCHIZOPHRENIA
     Route: 048
  2. LEPTICUR [Concomitant]
     Active Substance: TROPATEPINE HYDROCHLORIDE
  3. XEPLION [Suspect]
     Active Substance: PALIPERIDONE PALMITATE
  4. XEPLION [Suspect]
     Active Substance: PALIPERIDONE PALMITATE
  5. XEPLION [Suspect]
     Active Substance: PALIPERIDONE PALMITATE
     Indication: SCHIZOPHRENIA
     Dosage: DAY 01
     Route: 030
     Dates: start: 20200713
  6. DEPAMIDE [Concomitant]
     Active Substance: VALPROMIDE

REACTIONS (2)
  - Chromaturia [Unknown]
  - Vomiting [Unknown]

NARRATIVE: CASE EVENT DATE: 20200713
